FAERS Safety Report 10396031 (Version 1)
Quarter: 2014Q3

REPORT INFORMATION
  Report Type: Spontaneous
  Country: US (occurrence: None)
  Receive Date: 20140815
  Receipt Date: 20140815
  Transmission Date: 20150326
  Serious: No
  Sender: FDA-Public Use
  Company Number: None

PATIENT
  Age: 25 Year
  Sex: Male
  Weight: 104.78 kg

DRUGS (2)
  1. PRISTIQ EXTENDED RELEASE [Suspect]
     Active Substance: DESVENLAFAXINE SUCCINATE
     Indication: ANXIETY
     Route: 048
     Dates: start: 20140613, end: 20140812
  2. PRISTIQ EXTENDED RELEASE [Suspect]
     Active Substance: DESVENLAFAXINE SUCCINATE
     Indication: DEPRESSION
     Route: 048
     Dates: start: 20140613, end: 20140812

REACTIONS (2)
  - Drug withdrawal syndrome [None]
  - Depression [None]

NARRATIVE: CASE EVENT DATE: 20140613
